FAERS Safety Report 12155251 (Version 1)
Quarter: 2016Q1

REPORT INFORMATION
  Report Type: Spontaneous
  Country: US (occurrence: US)
  Receive Date: 20160307
  Receipt Date: 20160307
  Transmission Date: 20160526
  Serious: No
  Sender: FDA-Public Use
  Company Number: US-AMGEN-USASP2016000085

PATIENT
  Sex: Female

DRUGS (1)
  1. BLINCYTO [Suspect]
     Active Substance: BLINATUMOMAB
     Indication: PRODUCT USED FOR UNKNOWN INDICATION
     Dosage: 9 MUG/KG, UNK
     Route: 065
     Dates: start: 20160102

REACTIONS (3)
  - Hepatic enzyme increased [Unknown]
  - Drug intolerance [Unknown]
  - Device occlusion [Unknown]

NARRATIVE: CASE EVENT DATE: 201601
